FAERS Safety Report 9478270 (Version 1)
Quarter: 2013Q3

REPORT INFORMATION
  Report Type: Spontaneous
  Country: US (occurrence: None)
  Receive Date: 20130821
  Receipt Date: 20130821
  Transmission Date: 20140515
  Serious: Yes (Death)
  Sender: FDA-Public Use
  Company Number: SYM-2013-08621

PATIENT
  Sex: 0

DRUGS (3)
  1. FLUOROURACIL (FLUOROURACIL) (FLUOROURACIL) [Suspect]
     Indication: OESOPHAGEAL CARCINOMA
  2. CISPLATIN (CISPLATIN) (CISPLATIN) [Suspect]
     Indication: OESOPHAGEAL CARCINOMA
  3. TAXOTERE (DOCETAXEL) (DOCETAXEL) [Suspect]
     Indication: OESOPHAGEAL CARCINOMA

REACTIONS (1)
  - Toxicity to various agents [None]
